FAERS Safety Report 11079392 (Version 1)
Quarter: 2015Q2

REPORT INFORMATION
  Report Type: Spontaneous
  Country: SI (occurrence: None)
  Receive Date: 20150428
  Receipt Date: 20150428
  Transmission Date: 20150821
  Serious: Yes (Hospitalization)
  Sender: FDA-Public Use
  Company Number: NL01PV15_38908

PATIENT
  Age: 68 Year
  Sex: Female

DRUGS (4)
  1. ZOLPIDEM [Suspect]
     Active Substance: ZOLPIDEM\ZOLPIDEM TARTRATE
     Indication: INSOMNIA
     Dosage: 10 MG UP TO 60 MG, DAILY
     Dates: start: 2009
  2. PAROXETINE [Concomitant]
     Active Substance: PAROXETINE\PAROXETINE HYDROCHLORIDE
  3. ROPINIROLE. [Concomitant]
     Active Substance: ROPINIROLE
  4. LEVODOPA [Concomitant]
     Active Substance: LEVODOPA

REACTIONS (9)
  - Dyspnoea [None]
  - Rhabdomyolysis [None]
  - Drug abuse [None]
  - Drug withdrawal syndrome [None]
  - Dystonia [None]
  - Dysphagia [None]
  - Muscle spasms [None]
  - Tachypnoea [None]
  - Hyperhidrosis [None]
